FAERS Safety Report 14125267 (Version 1)
Quarter: 2017Q4

REPORT INFORMATION
  Report Type: Spontaneous
  Country: US (occurrence: US)
  Receive Date: 20171025
  Receipt Date: 20171025
  Transmission Date: 20180321
  Serious: No
  Sender: FDA-Public Use
  Company Number: US-CELGENEUS-USA-20171002607

PATIENT
  Sex: Female

DRUGS (2)
  1. POMALYST [Suspect]
     Active Substance: POMALIDOMIDE
     Indication: PLASMA CELL MYELOMA
     Dosage: 4 MILLIGRAM
     Route: 048
     Dates: start: 20170501, end: 2017
  2. POMALYST [Suspect]
     Active Substance: POMALIDOMIDE
     Indication: PROPHYLAXIS
     Dosage: 3 MILLIGRAM
     Route: 048
     Dates: start: 201710

REACTIONS (2)
  - Laboratory test abnormal [Unknown]
  - Neutropenia [Unknown]

NARRATIVE: CASE EVENT DATE: 2017
